FAERS Safety Report 6692155-3 (Version None)
Quarter: 2010Q2

REPORT INFORMATION
  Report Type: 
  Country: None (occurrence: None)
  Receive Date: 20100422
  Receipt Date: 20090803
  Transmission Date: 20101027
  Serious: No
  Sender: FDA-Public Use
  Company Number: US-ASTRAZENECA-2009UW15410

PATIENT
  Age: 69 Year
  Sex: Female

DRUGS (5)
  1. TOPROL-XL [Suspect]
     Route: 048
     Dates: start: 20030101
  2. METOPROLOL SUCCINATE [Suspect]
     Route: 048
     Dates: start: 20080101
  3. QUINAPRIL [Concomitant]
  4. LIBRIUM [Concomitant]
  5. XANAX [Concomitant]

REACTIONS (6)
  - ANXIETY [None]
  - DYSPEPSIA [None]
  - HYPERSENSITIVITY [None]
  - HYPERTENSION [None]
  - NERVOUSNESS [None]
  - RASH [None]
